FAERS Safety Report 23464699 (Version 1)
Quarter: 2024Q1

REPORT INFORMATION
  Report Type: Spontaneous
  Country: CN (occurrence: CN)
  Receive Date: 20240201
  Receipt Date: 20240201
  Transmission Date: 20240410
  Serious: Yes (Other)
  Sender: FDA-Public Use
  Company Number: None

PATIENT
  Age: 29 Year
  Sex: Male

DRUGS (6)
  1. LEVETIRACETAM [Suspect]
     Active Substance: LEVETIRACETAM
     Indication: Mitochondrial encephalomyopathy
     Dosage: UNK, UNK
  2. IDEBENONE [Suspect]
     Active Substance: IDEBENONE
     Indication: Mitochondrial encephalomyopathy
     Dosage: UNK, UNK
  3. VITAMIN E [Suspect]
     Active Substance: .ALPHA.-TOCOPHEROL
     Indication: Mitochondrial encephalomyopathy
     Dosage: LONG TERM USE
  4. VITAMIN B2 [Suspect]
     Active Substance: RIBOFLAVIN
     Indication: Mitochondrial encephalomyopathy
     Dosage: UNK, UNK
  5. METHYLCOBALAMIN [Suspect]
     Active Substance: METHYLCOBALAMIN
     Indication: Mitochondrial encephalomyopathy
     Dosage: UNK,UNK
  6. LORAZEPAM [Suspect]
     Active Substance: LORAZEPAM
     Indication: Mitochondrial encephalomyopathy
     Dosage: UNK, UNK

REACTIONS (1)
  - Cataract nuclear [Recovered/Resolved]
